FAERS Safety Report 14979926 (Version 1)
Quarter: 2018Q2

REPORT INFORMATION
  Report Type: Report from Study
  Country: IT (occurrence: IT)
  Receive Date: 20180606
  Receipt Date: 20180606
  Transmission Date: 20180711
  Serious: Yes (Hospitalization)
  Sender: FDA-Public Use
  Company Number: IT-NAPPMUNDI-GBR-2018-0056493

PATIENT
  Age: 62 Year
  Sex: Male

DRUGS (2)
  1. RIVOTRIL [Suspect]
     Active Substance: CLONAZEPAM
     Indication: INTENTIONAL SELF-INJURY
     Dosage: 5 ML, TOTAL
     Route: 048
     Dates: start: 20170309, end: 20170309
  2. OXYCONTIN [Suspect]
     Active Substance: OXYCODONE HYDROCHLORIDE
     Indication: INTENTIONAL SELF-INJURY
     Dosage: 1 DF, TOTAL
     Route: 048

REACTIONS (4)
  - Intentional self-injury [Recovered/Resolved]
  - Oxygen saturation decreased [Recovered/Resolved]
  - Coma [Recovered/Resolved]
  - Drug abuse [Recovered/Resolved]

NARRATIVE: CASE EVENT DATE: 20170309
